FAERS Safety Report 9693753 (Version 2)
Quarter: 2014Q1

REPORT INFORMATION
  Report Type: Spontaneous
  Country: JP (occurrence: JP)
  Receive Date: 20131118
  Receipt Date: 20140131
  Transmission Date: 20141002
  Serious: Yes (Other)
  Sender: FDA-Public Use
  Company Number: JP-EISAI INC-E2020-13153-SPO-JP

PATIENT
  Age: 88 Year
  Sex: Female

DRUGS (8)
  1. ARICEPT [Suspect]
     Indication: DEMENTIA ALZHEIMER^S TYPE
     Route: 048
     Dates: start: 2012, end: 201310
  2. ARICEPT [Suspect]
     Route: 048
     Dates: start: 201310
  3. OMEPRAL [Concomitant]
  4. MUCOSOLVAN [Concomitant]
     Route: 048
  5. ERYTHROCIN [Concomitant]
     Route: 048
  6. PROMAC [Concomitant]
     Route: 048
  7. THEOPHYLLINE [Concomitant]
     Route: 048
  8. HOKUNALIN [Concomitant]

REACTIONS (1)
  - Pancytopenia [Not Recovered/Not Resolved]
